FAERS Safety Report 7632563-7 (Version None)
Quarter: 2011Q3

REPORT INFORMATION
  Report Type: 
  Country: None (occurrence: None)
  Receive Date: 20110725
  Receipt Date: 20101014
  Transmission Date: 20111222
  Serious: Yes (Other)
  Sender: FDA-Public Use
  Company Number: US-BRISTOL-MYERS SQUIBB COMPANY-15334667

PATIENT
  Age: 58 Year
  Sex: Male

DRUGS (4)
  1. ANTIBIOTIC [Concomitant]
  2. PREDNISONE [Concomitant]
  3. COUMADIN [Suspect]
     Dosage: JUL2010 TO JUL2010 06AUG2010 TO UNK
     Route: 065
     Dates: start: 20100701
  4. PROLASTIN [Suspect]
     Indication: ALPHA-1 ANTI-TRYPSIN DEFICIENCY
     Dosage: LOT:26NGGG1; EXP:04JUN2010 PROLASTIN C INFUSION
     Route: 042
     Dates: start: 20100501

REACTIONS (3)
  - HAEMOPTYSIS [None]
  - PROTHROMBIN TIME PROLONGED [None]
  - UPPER RESPIRATORY TRACT INFECTION [None]
